FAERS Safety Report 11815978 (Version 1)
Quarter: 2015Q4

REPORT INFORMATION
  Report Type: Spontaneous
  Country: US (occurrence: US)
  Receive Date: 20151209
  Receipt Date: 20151209
  Transmission Date: 20160305
  Serious: Yes (Other)
  Sender: FDA-Public Use
  Company Number: US-BAYER-2015-479971

PATIENT
  Age: 44 Year
  Sex: Female
  Weight: 113.3 kg

DRUGS (2)
  1. AFRIN SEVERE CONGESTION [Suspect]
     Active Substance: OXYMETAZOLINE HYDROCHLORIDE
     Indication: NASAL CONGESTION
  2. AFRIN SEVERE CONGESTION [Suspect]
     Active Substance: OXYMETAZOLINE HYDROCHLORIDE
     Indication: SEASONAL ALLERGY
     Dosage: 1 SPRAY IN EAC NOSTRIL 4 TIMES, DAILY,
     Route: 045
     Dates: start: 1982

REACTIONS (3)
  - Drug dependence [Not Recovered/Not Resolved]
  - Product use issue [None]
  - Intentional product use issue [None]
